FAERS Safety Report 21663082 (Version 3)
Quarter: 2023Q1

REPORT INFORMATION
  Report Type: Spontaneous
  Country: GR (occurrence: GR)
  Receive Date: 20221130
  Receipt Date: 20230208
  Transmission Date: 20230417
  Serious: No
  Sender: FDA-Public Use
  Company Number: GR-PFIZER INC-PV202200106948

PATIENT
  Age: 11 Year
  Sex: Female
  Weight: 34 kg

DRUGS (3)
  1. GENOTROPIN [Suspect]
     Active Substance: SOMATROPIN
     Indication: Turner^s syndrome
     Dosage: 9 MG (1.1MG +1.2MG ALTERNATIVELY WITHOUT DAY OFF), WEEKLY (NO DAY OFF) / 5.3 MG PEN
     Route: 058
     Dates: start: 20210611
  2. LEVOTHYROXINE [Concomitant]
     Active Substance: LEVOTHYROXINE
     Indication: Thyroid disorder
     Dosage: 50 MG, 1X/DAY (MONDAY TO SATURDAY)
  3. LEVOTHYROXINE [Concomitant]
     Active Substance: LEVOTHYROXINE
     Dosage: 60 MG, 1X/DAY (ON SUNDAY)

REACTIONS (3)
  - Drug dose omission by device [Unknown]
  - Device physical property issue [Unknown]
  - Wrong technique in device usage process [Unknown]

NARRATIVE: CASE EVENT DATE: 20221116
